FAERS Safety Report 17730680 (Version 3)
Quarter: 2020Q3

REPORT INFORMATION
  Report Type: Spontaneous
  Country: US (occurrence: US)
  Receive Date: 20200430
  Receipt Date: 20200721
  Transmission Date: 20201102
  Serious: Yes (Death)
  Sender: FDA-Public Use
  Company Number: US-ASTRAZENECA-2020SE55590

PATIENT
  Sex: Female

DRUGS (1)
  1. BYDUREON [Suspect]
     Active Substance: EXENATIDE
     Dosage: 2 MG 4 COUNT ONCE A WEEK
     Route: 058
     Dates: start: 2017

REACTIONS (4)
  - Drug delivery system issue [Unknown]
  - Injection site haemorrhage [Unknown]
  - Visual impairment [Unknown]
  - Death [Fatal]
